FAERS Safety Report 4590105-7 (Version None)
Quarter: 2005Q1

REPORT INFORMATION
  Report Type: 
  Country: None (occurrence: None)
  Receive Date: 20050224
  Receipt Date: 20041109
  Transmission Date: 20050727
  Serious: Yes (Hospitalization, Other)
  Sender: FDA-Public Use
  Company Number: PHEH2004US12105

PATIENT
  Age: 47 Year
  Sex: Female

DRUGS (3)
  1. NAPROSYN [Concomitant]
     Indication: HEADACHE
  2. TOFRANIL [Suspect]
     Indication: DEPRESSION
     Dosage: 50 MG, BID
     Route: 048
     Dates: end: 20041001
  3. TEGRETOL [Suspect]
     Indication: DEPRESSION
     Dosage: 100 MG, BID
     Route: 048
     Dates: end: 20041001

REACTIONS (34)
  - AGRANULOCYTOSIS [None]
  - ALANINE AMINOTRANSFERASE INCREASED [None]
  - ASPARTATE AMINOTRANSFERASE INCREASED [None]
  - ATELECTASIS [None]
  - BLOOD ALKALINE PHOSPHATASE INCREASED [None]
  - BONE MARROW DEPRESSION [None]
  - FIBROMA [None]
  - GRANULOCYTES ABNORMAL [None]
  - HAEMATOCRIT DECREASED [None]
  - HAEMOGLOBIN DECREASED [None]
  - HEADACHE [None]
  - HEPATIC MASS [None]
  - HYPERHIDROSIS [None]
  - HYPOAESTHESIA [None]
  - LIPOMA [None]
  - LIVER ABSCESS [None]
  - LIVER DISORDER [None]
  - LYMPHADENOPATHY [None]
  - MALNUTRITION [None]
  - MUSCULOSKELETAL DISCOMFORT [None]
  - NECK MASS [None]
  - NECK PAIN [None]
  - NEUTROPENIA [None]
  - OROPHARYNGEAL SWELLING [None]
  - PAIN IN EXTREMITY [None]
  - PANCYTOPENIA [None]
  - PARAESTHESIA [None]
  - PERITONSILLAR ABSCESS [None]
  - PHARYNGITIS [None]
  - PHARYNGOLARYNGEAL PAIN [None]
  - PLATELET COUNT DECREASED [None]
  - PYREXIA [None]
  - TONSILLITIS [None]
  - WHITE BLOOD CELL COUNT DECREASED [None]
